FAERS Safety Report 25780178 (Version 1)
Quarter: 2025Q3

REPORT INFORMATION
  Report Type: Report from Study
  Country: US (occurrence: US)
  Receive Date: 20250909
  Receipt Date: 20250909
  Transmission Date: 20251020
  Serious: Yes (Death, Life-Threatening, Hospitalization, Disabling, Other)
  Sender: IOVANCE BIOTHERAPEUTICS MANUFACTURING LLC
  Company Number: US-CLINIGEN-US-CLI-2023-037016

PATIENT
  Age: 47 Year
  Sex: Male

DRUGS (9)
  1. ALDESLEUKIN [Suspect]
     Active Substance: ALDESLEUKIN
     Indication: Metastasis
     Route: 065
     Dates: start: 20230919, end: 20230921
  2. ALDESLEUKIN [Suspect]
     Active Substance: ALDESLEUKIN
     Indication: Non-small cell lung cancer
  3. LYMPHOCYTES [Suspect]
     Active Substance: LYMPHOCYTES
     Indication: Metastasis
     Route: 065
     Dates: start: 20230919, end: 20230919
  4. LYMPHOCYTES [Suspect]
     Active Substance: LYMPHOCYTES
     Indication: Non-small cell lung cancer
  5. CYCLOPHOSPHAMIDE [Suspect]
     Active Substance: CYCLOPHOSPHAMIDE
     Indication: Metastasis
     Route: 065
     Dates: start: 20230914, end: 20230915
  6. CYCLOPHOSPHAMIDE [Suspect]
     Active Substance: CYCLOPHOSPHAMIDE
     Indication: Non-small cell lung cancer
  7. FLUDARABINE [Suspect]
     Active Substance: FLUDARABINE PHOSPHATE
     Indication: Metastasis
     Route: 065
     Dates: start: 20230917, end: 20230918
  8. FLUDARABINE [Suspect]
     Active Substance: FLUDARABINE PHOSPHATE
     Indication: Non-small cell lung cancer
  9. INDOMETHACIN [Concomitant]
     Active Substance: INDOMETHACIN
     Indication: Febrile neutropenia
     Route: 065
     Dates: start: 202309, end: 20230921

REACTIONS (5)
  - Encephalopathy [Recovered/Resolved]
  - Acute kidney injury [Recovered/Resolved with Sequelae]
  - Pulmonary oedema [Recovered/Resolved]
  - Capillary leak syndrome [Recovered/Resolved]
  - Death [Fatal]

NARRATIVE: CASE EVENT DATE: 20230921
